FAERS Safety Report 21342670 (Version 1)
Quarter: 2022Q3

REPORT INFORMATION
  Report Type: Spontaneous
  Country: FR (occurrence: FR)
  Receive Date: 20220916
  Receipt Date: 20220916
  Transmission Date: 20221027
  Serious: Yes (Hospitalization)
  Sender: FDA-Public Use
  Company Number: None

PATIENT
  Age: 71 Year
  Sex: Female

DRUGS (2)
  1. AVELUMAB [Suspect]
     Active Substance: AVELUMAB
     Indication: Gallbladder adenocarcinoma
     Dosage: START DATE:15-JUL-2022
     Route: 040
     Dates: start: 20220715, end: 20220809
  2. REGORAFENIB [Suspect]
     Active Substance: REGORAFENIB
     Indication: Gallbladder adenocarcinoma
     Route: 048
     Dates: start: 20220601, end: 20220809

REACTIONS (5)
  - Dermatitis exfoliative generalised [Recovering/Resolving]
  - Hepatitis acute [Not Recovered/Not Resolved]
  - Colitis [Recovering/Resolving]
  - Thrombocytopenia [Not Recovered/Not Resolved]
  - Hypothyroidism [Recovered/Resolved]

NARRATIVE: CASE EVENT DATE: 20220808
